FAERS Safety Report 23822955 (Version 1)
Quarter: 2024Q2

REPORT INFORMATION
  Report Type: Report from Study
  Country: US (occurrence: US)
  Receive Date: 20240506
  Receipt Date: 20240506
  Transmission Date: 20240716
  Serious: Yes (Hospitalization, Other)
  Sender: FDA-Public Use
  Company Number: US-ABBVIE-5744604

PATIENT
  Sex: Female

DRUGS (1)
  1. ARMOUR THYROID [Suspect]
     Active Substance: THYROID, PORCINE
     Indication: Product used for unknown indication
     Dosage: 120MG, FORM STRENGTH: 120 MILLIGRAM
     Route: 065

REACTIONS (4)
  - Abortion spontaneous [Unknown]
  - Investigation abnormal [Unknown]
  - Stress [Unknown]
  - Maternal exposure during pregnancy [Unknown]
